FAERS Safety Report 23534646 (Version 2)
Quarter: 2024Q2

REPORT INFORMATION
  Report Type: Spontaneous
  Country: US (occurrence: US)
  Receive Date: 20240217
  Receipt Date: 20240625
  Transmission Date: 20240716
  Serious: No
  Sender: FDA-Public Use
  Company Number: US-LUPIN PHARMACEUTICALS INC.-2024-01122

PATIENT

DRUGS (1)
  1. ALBUTEROL SULFATE [Suspect]
     Active Substance: ALBUTEROL SULFATE
     Indication: Asthma
     Dosage: UNK (2 PUFFS EVERY 6 HOURS AS NEEDED)
     Dates: start: 20231223

REACTIONS (4)
  - Device delivery system issue [Unknown]
  - Product lot number issue [Unknown]
  - Drug dose omission by device [Unknown]
  - No adverse event [Unknown]
